FAERS Safety Report 8136308-6 (Version None)
Quarter: 2012Q1

REPORT INFORMATION
  Report Type: 
  Country: None (occurrence: None)
  Receive Date: 20120214
  Receipt Date: 20120210
  Transmission Date: 20120608
  Serious: Yes (Hospitalization)
  Sender: FDA-Public Use
  Company Number: US-B.I. PHARMACEUTICALS,INC./RIDGEFIELD-2012-BP-02666BP

PATIENT
  Age: 96 Year
  Sex: Male

DRUGS (1)
  1. PRADAXA [Suspect]
     Dosage: 300 MG
     Route: 048
     Dates: start: 20120125, end: 20120131

REACTIONS (1)
  - TRANSIENT ISCHAEMIC ATTACK [None]
